FAERS Safety Report 8894123 (Version 1)
Quarter: 2012Q4

REPORT INFORMATION
  Report Type: 
  Country: US (occurrence: US)
  Receive Date: 20121107
  Receipt Date: 20121107
  Transmission Date: 20130627
  Serious: No
  Sender: FDA-Public Use
  Company Number: US-AMGEN-USASP2011060006

PATIENT
  Sex: Female
  Weight: 61.22 kg

DRUGS (5)
  1. ENBREL [Suspect]
     Indication: PRODUCT USED FOR UNKNOWN INDICATION
     Dosage: 50 mg, qwk
  2. PREDNISONE [Concomitant]
     Dosage: 10 mg, UNK
  3. VITAMIN D /00107901/ [Concomitant]
     Dosage: 5000 IU, UNK
  4. PROVENTIL                          /00139501/ [Concomitant]
     Dosage: 90 mug, UNK
  5. ORENCIA [Concomitant]
     Dosage: 250 mug, UNK
     Route: 058

REACTIONS (1)
  - Drug ineffective [Unknown]
